FAERS Safety Report 5748510-9 (Version None)
Quarter: 2008Q2

REPORT INFORMATION
  Report Type: 
  Country: None (occurrence: None)
  Receive Date: 20080512
  Receipt Date: 20080501
  Transmission Date: 20081010
  Serious: Yes (Hospitalization, Other)
  Sender: FDA-Public Use
  Company Number: WSDF_00723

PATIENT
  Age: 59 Year
  Sex: Female
  Weight: 127.9144 kg

DRUGS (7)
  1. WINRHO SDF [Suspect]
     Indication: IDIOPATHIC THROMBOCYTOPENIC PURPURA
     Dosage: 60.5 UG/KG QMONTH;IV
     Route: 042
     Dates: start: 20080305, end: 20080305
  2. WINRHO SDF [Suspect]
     Indication: IDIOPATHIC THROMBOCYTOPENIC PURPURA
     Dosage: NI
     Dates: start: 20080305, end: 20080305
  3. WINRHO SDF [Suspect]
     Indication: IDIOPATHIC THROMBOCYTOPENIC PURPURA
     Dosage: NI
     Dates: start: 20080305, end: 20080305
  4. XELODA [Concomitant]
  5. AVASTIN [Concomitant]
  6. SYNTHROID [Concomitant]
  7. LOMOTIL [Concomitant]

REACTIONS (12)
  - COAGULOPATHY [None]
  - DEHYDRATION [None]
  - DIARRHOEA [None]
  - DISEASE PROGRESSION [None]
  - DISSEMINATED INTRAVASCULAR COAGULATION [None]
  - HAEMOLYTIC ANAEMIA [None]
  - HYPERBILIRUBINAEMIA [None]
  - INTERNATIONAL NORMALISED RATIO INCREASED [None]
  - MALNUTRITION [None]
  - METASTASES TO LIVER [None]
  - NO THERAPEUTIC RESPONSE [None]
  - PYREXIA [None]
